FAERS Safety Report 6679933-1 (Version None)
Quarter: 2010Q2

REPORT INFORMATION
  Report Type: 
  Country: None (occurrence: None)
  Receive Date: 20100413
  Receipt Date: 20100407
  Transmission Date: 20101027
  Serious: Yes (Hospitalization, Other)
  Sender: FDA-Public Use
  Company Number: US-RB-027677-09

PATIENT
  Age: 53 Year
  Sex: Male

DRUGS (1)
  1. SUBOXONE [Suspect]
     Route: 060
     Dates: start: 20070101

REACTIONS (5)
  - DRUG DEPENDENCE [None]
  - FATIGUE [None]
  - LIBIDO DECREASED [None]
  - MYOCARDIAL INFARCTION [None]
  - TOOTH DISORDER [None]
